FAERS Safety Report 5664535-6 (Version None)
Quarter: 2008Q1

REPORT INFORMATION
  Report Type: 
  Country: None (occurrence: None)
  Receive Date: 20080311
  Receipt Date: 20080311
  Transmission Date: 20080703
  Serious: Yes (Other)
  Sender: FDA-Public Use
  Company Number: None

PATIENT
  Age: 58 Year
  Sex: Female
  Weight: 70.1 kg

DRUGS (5)
  1. ALIMTA [Suspect]
     Indication: LUNG CANCER METASTATIC
     Dosage: 880MG EVERY 21 DAYS IV
     Route: 042
     Dates: start: 20070904, end: 20080218
  2. DEXAMETHASONE TAB [Concomitant]
  3. FOLIC ACID [Concomitant]
  4. VITAMIN B-12 [Concomitant]
  5. DIPHENHYDRAMINE HCL [Concomitant]

REACTIONS (3)
  - HEPATITIS TOXIC [None]
  - MYALGIA [None]
  - RASH [None]
